FAERS Safety Report 6003570-5 (Version None)
Quarter: 2008Q4

REPORT INFORMATION
  Report Type: 
  Country: None (occurrence: None)
  Receive Date: 20081212
  Receipt Date: 20081212
  Transmission Date: 20090506
  Serious: Yes (Other)
  Sender: FDA-Public Use
  Company Number: None

PATIENT
  Sex: Female
  Weight: 73.64 kg

DRUGS (18)
  1. CRESTOR [Suspect]
     Dosage: 10MG TABLET 10 MG QHS ORAL
     Route: 048
     Dates: start: 20080417, end: 20081211
  2. ADVAIR DISKUS 100/50 [Concomitant]
  3. ALBUTEROL [Concomitant]
  4. AVAPRO [Concomitant]
  5. COENZYME Q10 [Concomitant]
  6. DILACOR XR (DILTIAZEM EXTENDED RELEASE) [Concomitant]
  7. ASPIRIN [Concomitant]
  8. EFFEXOR XR (VENLAFAXINE EXTENDED RELEASE) [Concomitant]
  9. FISH OIL CAPSULE (OMEGA-3- FATTY ACIDS) [Concomitant]
  10. KCL SUSTAINED RELEASE (KCL SLOW RELEASE) [Concomitant]
  11. LIPITOR [Concomitant]
  12. NITROGLYCERIN SUBLINGUAL [Concomitant]
  13. PLAVIX (CLOPIDORGREL) [Concomitant]
  14. PRILOSEC [Concomitant]
  15. TOPROL XL (METOPROLOL SUCCINATE EXTENDED... [Concomitant]
  16. TUMS [Concomitant]
  17. VITAMIN D2 (ERGOCALCIFEROL) [Concomitant]
  18. XANAX [Concomitant]

REACTIONS (1)
  - MYALGIA [None]
